FAERS Safety Report 19558238 (Version 1)
Quarter: 2021Q3

REPORT INFORMATION
  Report Type: Report from Study
  Country: FR (occurrence: FR)
  Receive Date: 20210715
  Receipt Date: 20210715
  Transmission Date: 20211014
  Serious: Yes (Hospitalization, Other)
  Sender: FDA-Public Use
  Company Number: FR-TAKEDA-2021TUS042012

PATIENT
  Age: 33 Year
  Sex: Female

DRUGS (20)
  1. TEDUGLUTIDE [Suspect]
     Active Substance: TEDUGLUTIDE
     Dosage: 2.80 MILLIGRAM, 7 DOSES PER WEEK
     Route: 065
     Dates: start: 20181126, end: 20190614
  2. TEDUGLUTIDE [Suspect]
     Active Substance: TEDUGLUTIDE
     Dosage: 2.80 MILLIGRAM, 7 DOSES PER WEEK
     Route: 065
     Dates: start: 20181126, end: 20190614
  3. TEDUGLUTIDE [Suspect]
     Active Substance: TEDUGLUTIDE
     Dosage: 2.60 MILLIGRAM, 7 DOSES PER WEEK
     Route: 065
     Dates: start: 20190615, end: 20191001
  4. INNOHEP [Concomitant]
     Active Substance: TINZAPARIN SODIUM
     Indication: DEVICE RELATED SEPSIS
     Dosage: 0.5 MILLILITER, QD
     Route: 065
     Dates: start: 20210205
  5. TEDUGLUTIDE [Suspect]
     Active Substance: TEDUGLUTIDE
     Dosage: 2.60 MILLIGRAM, 7 DOSES PER WEEK
     Route: 065
     Dates: start: 20190615, end: 20191001
  6. TEDUGLUTIDE [Suspect]
     Active Substance: TEDUGLUTIDE
     Indication: SHORT-BOWEL SYNDROME
     Dosage: 2.60 MILLIGRAM, 7 DOSES PER WEEK
     Route: 065
     Dates: start: 20180217, end: 20180607
  7. TEDUGLUTIDE [Suspect]
     Active Substance: TEDUGLUTIDE
     Dosage: 2.90 MILLIGRAM, 7 DOSES PER WEEK
     Route: 065
     Dates: start: 20180608, end: 20181125
  8. TEDUGLUTIDE [Suspect]
     Active Substance: TEDUGLUTIDE
     Dosage: 2.80 MILLIGRAM, 7 DOSES PER WEEK
     Route: 065
     Dates: start: 20181126, end: 20190614
  9. TEDUGLUTIDE [Suspect]
     Active Substance: TEDUGLUTIDE
     Indication: SHORT-BOWEL SYNDROME
     Dosage: 2.60 MILLIGRAM, 7 DOSES PER WEEK
     Route: 065
     Dates: start: 20180217, end: 20180607
  10. TEDUGLUTIDE [Suspect]
     Active Substance: TEDUGLUTIDE
     Indication: SHORT-BOWEL SYNDROME
     Dosage: 2.60 MILLIGRAM, 7 DOSES PER WEEK
     Route: 065
     Dates: start: 20180217, end: 20180607
  11. TEDUGLUTIDE [Suspect]
     Active Substance: TEDUGLUTIDE
     Dosage: 2.90 MILLIGRAM, 7 DOSES PER WEEK
     Route: 065
     Dates: start: 20180608, end: 20181125
  12. TEDUGLUTIDE [Suspect]
     Active Substance: TEDUGLUTIDE
     Dosage: 2.80 MILLIGRAM, 7 DOSES PER WEEK
     Route: 065
     Dates: start: 20181126, end: 20190614
  13. VITAMIN D [Concomitant]
     Active Substance: VITAMIN D NOS
     Indication: VITAMIN D DEFICIENCY
     Dosage: 1 DOSAGE FORM
     Route: 048
     Dates: start: 20200606
  14. LEVOCARNITINE. [Concomitant]
     Active Substance: LEVOCARNITINE
     Indication: CARNITINE DEFICIENCY
     Dosage: 1 DOSAGE FORM, TID
     Route: 048
     Dates: start: 20200606
  15. TEDUGLUTIDE [Suspect]
     Active Substance: TEDUGLUTIDE
     Indication: SHORT-BOWEL SYNDROME
     Dosage: 2.60 MILLIGRAM, 7 DOSES PER WEEK
     Route: 065
     Dates: start: 20180217, end: 20180607
  16. TEDUGLUTIDE [Suspect]
     Active Substance: TEDUGLUTIDE
     Dosage: 2.90 MILLIGRAM, 7 DOSES PER WEEK
     Route: 065
     Dates: start: 20180608, end: 20181125
  17. TEDUGLUTIDE [Suspect]
     Active Substance: TEDUGLUTIDE
     Dosage: 2.90 MILLIGRAM, 7 DOSES PER WEEK
     Route: 065
     Dates: start: 20180608, end: 20181125
  18. TEDUGLUTIDE [Suspect]
     Active Substance: TEDUGLUTIDE
     Dosage: 2.60 MILLIGRAM, 7 DOSES PER WEEK
     Route: 065
     Dates: start: 20190615, end: 20191001
  19. TEDUGLUTIDE [Suspect]
     Active Substance: TEDUGLUTIDE
     Dosage: 2.60 MILLIGRAM, 7 DOSES PER WEEK
     Route: 065
     Dates: start: 20190615, end: 20191001
  20. CLOXACILLINE [Concomitant]
     Active Substance: CLOXACILLIN
     Indication: DEVICE RELATED SEPSIS
     Dosage: 2 GRAM, 5TIMES PER DAY
     Route: 042
     Dates: start: 20210201, end: 20210205

REACTIONS (1)
  - Device related sepsis [Recovered/Resolved]

NARRATIVE: CASE EVENT DATE: 20210114
